FAERS Safety Report 5749946-2 (Version None)
Quarter: 2008Q2

REPORT INFORMATION
  Report Type: 
  Country: None (occurrence: None)
  Receive Date: 20080520
  Receipt Date: 20080520
  Transmission Date: 20081010
  Serious: Yes (Other)
  Sender: FDA-Public Use
  Company Number: None

PATIENT
  Age: 82 Year
  Sex: Male
  Weight: 74.8435 kg

DRUGS (1)
  1. VIAGRA [Suspect]
     Indication: ERECTILE DYSFUNCTION
     Dosage: 100 MG AS NEEDED
     Dates: start: 20040128, end: 20040528

REACTIONS (4)
  - AMNESIA [None]
  - COLD SWEAT [None]
  - PUPIL FIXED [None]
  - UNRESPONSIVE TO STIMULI [None]
